FAERS Safety Report 5928930-X (Version None)
Quarter: 2008Q3

REPORT INFORMATION
  Report Type: 
  Country: None (occurrence: None)
  Receive Date: 20080924
  Receipt Date: 20080424
  Transmission Date: 20090109
  Serious: Yes (Other)
  Sender: FDA-Public Use
  Company Number: PHEH2008US04100

PATIENT
  Age: 75 Year
  Sex: Female

DRUGS (1)
  1. LOPRESSOR [Suspect]

REACTIONS (3)
  - AMNESIA [None]
  - HALLUCINATION [None]
  - VISUAL IMPAIRMENT [None]
